FAERS Safety Report 6394544-3 (Version None)
Quarter: 2009Q4

REPORT INFORMATION
  Report Type: 
  Country: None (occurrence: None)
  Receive Date: 20091009
  Receipt Date: 20090929
  Transmission Date: 20100525
  Serious: Yes (Hospitalization, Other)
  Sender: FDA-Public Use
  Company Number: US-BAYER-200934687NA

PATIENT
  Age: 23 Year
  Sex: Female

DRUGS (1)
  1. YAZ [Suspect]
     Indication: MENSTRUATION IRREGULAR
     Dates: start: 20080101, end: 20090514

REACTIONS (6)
  - DYSPNOEA [None]
  - LOSS OF CONSCIOUSNESS [None]
  - MALAISE [None]
  - PULMONARY EMBOLISM [None]
  - SINUS OPERATION [None]
  - THROMBOSIS [None]
